FAERS Safety Report 5631888-4 (Version None)
Quarter: 2008Q1

REPORT INFORMATION
  Report Type: 
  Country: None (occurrence: None)
  Receive Date: 20080220
  Receipt Date: 20080207
  Transmission Date: 20080703
  Serious: Yes (Hospitalization)
  Sender: FDA-Public Use
  Company Number: US-AMGEN-US264570

PATIENT
  Age: 80 Year
  Sex: Male

DRUGS (2)
  1. PROCRIT [Suspect]
     Indication: ANAEMIA
  2. ARANESP [Suspect]
     Indication: ANAEMIA

REACTIONS (3)
  - BLOOD ELECTROLYTES ABNORMAL [None]
  - DYSPNOEA [None]
  - HAEMOGLOBIN DECREASED [None]
